FAERS Safety Report 15506438 (Version 1)
Quarter: 2018Q4

REPORT INFORMATION
  Report Type: Report from Study
  Country: ZA (occurrence: ZA)
  Receive Date: 20181016
  Receipt Date: 20181016
  Transmission Date: 20190205
  Serious: Yes (Hospitalization)
  Sender: FDA-Public Use
  Company Number: PHHY2017ZA151396

PATIENT
  Sex: Male

DRUGS (3)
  1. ACLASTA [Suspect]
     Active Substance: ZOLEDRONIC ACID
     Dosage: 1 DF (5MG/100ML), Q12MO
     Route: 041
     Dates: start: 201710
  2. ACLASTA [Suspect]
     Active Substance: ZOLEDRONIC ACID
     Dosage: 1 DF (5MG/100ML), Q12MO
     Route: 041
     Dates: start: 2018
  3. ACLASTA [Suspect]
     Active Substance: ZOLEDRONIC ACID
     Indication: PRODUCT USE IN UNAPPROVED INDICATION
     Dosage: 1 DF (5MG/100ML), Q12MO
     Route: 041
     Dates: start: 2014

REACTIONS (7)
  - Blood sodium decreased [Unknown]
  - Product use in unapproved indication [Unknown]
  - Muscle spasticity [Unknown]
  - Fractured coccyx [Unknown]
  - Pneumonia [Unknown]
  - Osteogenesis imperfecta [Unknown]
  - Hip fracture [Unknown]

NARRATIVE: CASE EVENT DATE: 2014
